FAERS Safety Report 13710653 (Version 1)
Quarter: 2017Q3

REPORT INFORMATION
  Report Type: Spontaneous
  Country: US (occurrence: US)
  Receive Date: 20170702
  Receipt Date: 20170702
  Transmission Date: 20171127
  Serious: Yes (Life-Threatening, Disabling)
  Sender: FDA-Public Use
  Company Number: None

PATIENT
  Age: 37 Year
  Sex: Male

DRUGS (1)
  1. CLONAZEPAM. [Suspect]
     Active Substance: CLONAZEPAM
     Indication: PANIC DISORDER

REACTIONS (11)
  - Fear [None]
  - Feeling abnormal [None]
  - Panic attack [None]
  - Muscle disorder [None]
  - Withdrawal syndrome [None]
  - Sleep disorder [None]
  - Disorientation [None]
  - Lethargy [None]
  - Hallucination, auditory [None]
  - Economic problem [None]
  - Anxiety [None]
